FAERS Safety Report 10025261 (Version 1)
Quarter: 2014Q1

REPORT INFORMATION
  Report Type: Report from Study
  Country: ES (occurrence: ES)
  Receive Date: 20140320
  Receipt Date: 20140320
  Transmission Date: 20141002
  Serious: Yes (Other)
  Sender: FDA-Public Use
  Company Number: ES-BAYER-2014-041446

PATIENT
  Sex: Female

DRUGS (1)
  1. REGORAFENIB [Suspect]
     Indication: COLORECTAL CANCER METASTATIC
     Dosage: UNK

REACTIONS (2)
  - Nervous system disorder [None]
  - Convulsion [None]
